FAERS Safety Report 15788195 (Version 1)
Quarter: 2019Q1

REPORT INFORMATION
  Report Type: Spontaneous
  Country: US (occurrence: US)
  Receive Date: 20190104
  Receipt Date: 20190104
  Transmission Date: 20190417
  Serious: Yes (Hospitalization, Other)
  Sender: FDA-Public Use
  Company Number: US-HIKMA PHARMACEUTICALS USA INC.-US-H14001-18-09201

PATIENT
  Age: 27 Year
  Sex: Male
  Weight: 86 kg

DRUGS (1)
  1. CAFFEINE. [Suspect]
     Active Substance: CAFFEINE
     Indication: PRODUCT USED FOR UNKNOWN INDICATION
     Route: 065

REACTIONS (12)
  - Supraventricular tachycardia [Recovered/Resolved]
  - Vomiting [Unknown]
  - Hypokalaemia [Unknown]
  - Intentional overdose [Recovered/Resolved]
  - Toxicity to various agents [Recovered/Resolved]
  - Leukocytosis [Unknown]
  - Hyperglycaemia [Unknown]
  - Drug abuse [Recovered/Resolved]
  - Tremor [Unknown]
  - Anion gap increased [Unknown]
  - Hyperhidrosis [Unknown]
  - Nausea [Unknown]
